FAERS Safety Report 9816955 (Version 1)
Quarter: 2014Q1

REPORT INFORMATION
  Report Type: Spontaneous
  Country: US (occurrence: US)
  Receive Date: 20140114
  Receipt Date: 20140114
  Transmission Date: 20141002
  Serious: Yes (Other)
  Sender: FDA-Public Use
  Company Number: US-GLAXOSMITHKLINE-A1054995A

PATIENT
  Age: 75 Year
  Sex: Female

DRUGS (8)
  1. PROMACTA [Suspect]
     Indication: PLATELET COUNT DECREASED
     Dosage: 25MG PER DAY
     Route: 048
     Dates: start: 20100922
  2. DIOVAN [Concomitant]
  3. ATORVASTATIN [Concomitant]
  4. GLUCOSAMINE [Concomitant]
  5. MULTIVITAMINS [Concomitant]
  6. CALCIUM [Concomitant]
  7. FISH OIL [Concomitant]
  8. COQ10 [Concomitant]

REACTIONS (6)
  - Cerebral atrophy [Not Recovered/Not Resolved]
  - Influenza [Unknown]
  - Malaise [Unknown]
  - Headache [Not Recovered/Not Resolved]
  - Blood pressure increased [Not Recovered/Not Resolved]
  - Stress [Unknown]
